FAERS Safety Report 7918161-6 (Version None)
Quarter: 2011Q4

REPORT INFORMATION
  Report Type: 
  Country: None (occurrence: None)
  Receive Date: 20111114
  Receipt Date: 20111104
  Transmission Date: 20120403
  Serious: Yes (Other)
  Sender: FDA-Public Use
  Company Number: 2011SP045908

PATIENT
  Age: 27 Year
  Sex: Female

DRUGS (2)
  1. IMPLANON [Concomitant]
  2. NEXPLANON [Suspect]
     Indication: CONTRACEPTION
     Dosage: 1 DF
     Dates: start: 20110301, end: 20110928

REACTIONS (3)
  - PAIN [None]
  - MOTOR DYSFUNCTION [None]
  - PARAESTHESIA [None]
